FAERS Safety Report 6654146-8 (Version None)
Quarter: 2010Q1

REPORT INFORMATION
  Report Type: 
  Country: None (occurrence: None)
  Receive Date: 20100326
  Receipt Date: 20100317
  Transmission Date: 20100710
  Serious: Yes (Hospitalization, Other)
  Sender: FDA-Public Use
  Company Number: GB-PFIZER INC-2010034320

PATIENT
  Age: 45 Year
  Sex: Female

DRUGS (2)
  1. DOXORUBICIN HCL [Suspect]
     Indication: BREAST CANCER METASTATIC
     Dosage: 50 MG/M2, UNK
     Route: 042
  2. DOCETAXEL [Interacting]
     Indication: BREAST CANCER METASTATIC
     Dosage: 75 MG/M2, UNK

REACTIONS (5)
  - ABDOMINAL DISTENSION [None]
  - ABDOMINAL PAIN [None]
  - DIARRHOEA [None]
  - JAUNDICE CHOLESTATIC [None]
  - PSEUDOMEMBRANOUS COLITIS [None]
